FAERS Safety Report 6538235-4 (Version None)
Quarter: 2010Q1

REPORT INFORMATION
  Report Type: 
  Country: None (occurrence: None)
  Receive Date: 20100112
  Receipt Date: 20100112
  Transmission Date: 20100710
  Serious: Yes (Hospitalization, Other)
  Sender: FDA-Public Use
  Company Number: None

PATIENT
  Age: 44 Year
  Sex: Male
  Weight: 81.6475 kg

DRUGS (1)
  1. ZYBAN [Suspect]

REACTIONS (12)
  - AGITATION [None]
  - ANGER [None]
  - COMPULSIVE SHOPPING [None]
  - EDUCATIONAL PROBLEM [None]
  - FEELING ABNORMAL [None]
  - HALLUCINATION [None]
  - HOSTILITY [None]
  - MEMORY IMPAIRMENT [None]
  - PANIC ATTACK [None]
  - PARANOIA [None]
  - PERSONALITY DISORDER [None]
  - SELF-INJURIOUS IDEATION [None]
